FAERS Safety Report 5164460-3 (Version None)
Quarter: 2006Q4

REPORT INFORMATION
  Report Type: 
  Country: None (occurrence: None)
  Receive Date: 20061205
  Receipt Date: 20061108
  Transmission Date: 20070319
  Serious: Yes (Other)
  Sender: FDA-Public Use
  Company Number: SA-ROCHE-471971

PATIENT
  Weight: 62 kg

DRUGS (5)
  1. PEGASYS [Suspect]
     Route: 058
     Dates: start: 20050315, end: 20060315
  2. COPEGUS [Suspect]
     Indication: DRUG USE FOR UNKNOWN INDICATION
     Route: 065
     Dates: start: 20050315, end: 20060315
  3. GLUCOPHAGE [Concomitant]
     Indication: DIABETES MELLITUS
     Route: 048
  4. APROVEL [Concomitant]
     Indication: HYPERTENSION
     Dosage: DRUG REPORTED AS APROVAL. DOSING REGIMEN REPORTED AS PO.
     Route: 048
  5. ASPIRIN [Concomitant]
     Route: 048

REACTIONS (1)
  - ANAEMIA MACROCYTIC [None]
